FAERS Safety Report 6291253-6 (Version None)
Quarter: 2009Q3

REPORT INFORMATION
  Report Type: 
  Country: None (occurrence: None)
  Receive Date: 20090730
  Receipt Date: 20090721
  Transmission Date: 20100115
  Serious: Yes (Hospitalization, Other)
  Sender: FDA-Public Use
  Company Number: US-AMGEN-STX352510

PATIENT
  Sex: Male

DRUGS (9)
  1. ENBREL [Suspect]
     Indication: PSORIATIC ARTHROPATHY
     Route: 058
  2. ENBREL [Suspect]
     Indication: PSORIASIS
  3. GABAPENTIN [Concomitant]
  4. PRAVASTATIN [Concomitant]
  5. BENAZEPRIL HYDROCHLORIDE [Concomitant]
  6. ZYRTEC [Concomitant]
  7. FLOMAX [Concomitant]
  8. HYOSCYAMINE [Concomitant]
  9. ACETAMINOPHEN, BUTALBITAL AND CAFFEINE [Concomitant]

REACTIONS (8)
  - ACTINIC KERATOSIS [None]
  - ARTHRALGIA [None]
  - INJECTION SITE PAIN [None]
  - JOINT ARTHROPLASTY [None]
  - MALIGNANT MELANOMA [None]
  - PNEUMONIA [None]
  - SHOULDER OPERATION [None]
  - SMALL INTESTINAL OBSTRUCTION [None]
